FAERS Safety Report 20637136 (Version 1)
Quarter: 2022Q1

REPORT INFORMATION
  Report Type: Other
  Country: DE (occurrence: None)
  Receive Date: 20220325
  Receipt Date: 20220325
  Transmission Date: 20220424
  Serious: Yes (Hospitalization, Other)
  Sender: FDA-Public Use
  Company Number: DE-ROCHE-2340401

PATIENT
  Age: 53 Year
  Sex: Female

DRUGS (11)
  1. OCREVUS [Suspect]
     Active Substance: OCRELIZUMAB
     Indication: Secondary progressive multiple sclerosis
     Route: 042
     Dates: start: 20180828
  2. OCREVUS [Suspect]
     Active Substance: OCRELIZUMAB
     Indication: Relapsing multiple sclerosis
     Route: 042
     Dates: start: 20190725
  3. OCREVUS [Suspect]
     Active Substance: OCRELIZUMAB
     Route: 042
     Dates: start: 20210112
  4. CORTISONE [Suspect]
     Active Substance: CORTISONE
     Indication: Premedication
     Route: 065
  5. KESIMPTA [Suspect]
     Active Substance: OFATUMUMAB
     Indication: Multiple sclerosis
     Route: 065
  6. VITAMIN D3 [Concomitant]
     Active Substance: CHOLECALCIFEROL
  7. BACLOFEN [Concomitant]
     Active Substance: BACLOFEN
     Dosage: AT NIGHT
  8. BACLOFEN [Concomitant]
     Active Substance: BACLOFEN
     Dosage: AT NIGHT
  9. NABIXIMOLS [Concomitant]
     Active Substance: NABIXIMOLS
     Dosage: FREQUENCY TIME: DAYS
  10. AZATHIOPRINE [Concomitant]
     Active Substance: AZATHIOPRINE
     Route: 048
  11. TRIAMCINOLONE ACETONIDE [Concomitant]
     Active Substance: TRIAMCINOLONE ACETONIDE
     Dosage: EVERY THREE MONTHS

REACTIONS (11)
  - Visual impairment [Recovered/Resolved]
  - Dislocation of vertebra [Recovering/Resolving]
  - General physical health deterioration [Recovered/Resolved]
  - Gait disturbance [Recovered/Resolved]
  - Optic neuritis [Recovered/Resolved]
  - Intervertebral disc protrusion [Recovered/Resolved]
  - Infection [Recovered/Resolved]
  - Sleep disorder [Recovered/Resolved]
  - Fatigue [Recovered/Resolved]
  - Paraesthesia [Recovered/Resolved]
  - COVID-19 [Not Recovered/Not Resolved]

NARRATIVE: CASE EVENT DATE: 20190515
